FAERS Safety Report 8351056-5 (Version None)
Quarter: 2012Q2

REPORT INFORMATION
  Report Type: 
  Country: None (occurrence: None)
  Receive Date: 20120510
  Receipt Date: 20120507
  Transmission Date: 20120825
  Serious: Yes (Hospitalization)
  Sender: FDA-Public Use
  Company Number: US-GILEAD-2012-0054707

PATIENT
  Age: 24 Year
  Sex: Male

DRUGS (9)
  1. RITONAVIR [Suspect]
     Indication: HIV INFECTION
     Dosage: 100 MG, QD
     Route: 048
     Dates: start: 20100714
  2. LYRICA [Concomitant]
  3. ZOFRAN [Concomitant]
  4. EMTRICITABINE/TENOFOVIR DISOPROXIL FUMARATE [Suspect]
     Indication: HIV INFECTION
     Dosage: 1 DF, QD
     Route: 048
     Dates: start: 20100714
  5. NAPROXEN [Concomitant]
  6. BACLOFEN [Concomitant]
  7. ATAZANAVIR [Suspect]
     Indication: HIV INFECTION
     Dosage: 300 MG, QD
     Route: 048
     Dates: start: 20100714
  8. UNISOM                             /00000402/ [Concomitant]
  9. MINIPRESS [Concomitant]

REACTIONS (1)
  - SUICIDAL IDEATION [None]
